FAERS Safety Report 8354731-1 (Version None)
Quarter: 2012Q2

REPORT INFORMATION
  Report Type: 
  Country: None (occurrence: None)
  Receive Date: 20120511
  Receipt Date: 20120504
  Transmission Date: 20120825
  Serious: Yes (Congenital Anomaly)
  Sender: FDA-Public Use
  Company Number: PH-VIIV HEALTHCARE LIMITED-A0977180A

PATIENT
  Sex: Male
  Weight: 3 kg

DRUGS (2)
  1. BARACLUDE [Suspect]
     Indication: ANTIRETROVIRAL THERAPY
     Route: 064
     Dates: start: 20010814, end: 20040206
  2. EPIVIR [Suspect]
     Indication: ANTIRETROVIRAL THERAPY
     Dosage: 100MGD PER DAY
     Route: 064
     Dates: start: 20010814, end: 20040206

REACTIONS (4)
  - NEONATAL DISORDER [None]
  - BLOOD TEST ABNORMAL [None]
  - STAPHYLOCOCCAL INFECTION [None]
  - FOETAL EXPOSURE DURING PREGNANCY [None]
